FAERS Safety Report 24806054 (Version 6)
Quarter: 2025Q4

REPORT INFORMATION
  Report Type: Report from Study
  Country: CA (occurrence: CA)
  Receive Date: 20250103
  Receipt Date: 20251017
  Transmission Date: 20260117
  Serious: Yes (Other)
  Sender: BLUEPRINT MEDICINES
  Company Number: CA-Blueprint Medicines Corporation-2024-AER-00087

PATIENT
  Age: 70 Year
  Sex: Male

DRUGS (8)
  1. AVAPRITINIB [Suspect]
     Active Substance: AVAPRITINIB
     Indication: Advanced systemic mastocytosis
     Route: 048
     Dates: start: 20200407, end: 202412
  2. AVAPRITINIB [Suspect]
     Active Substance: AVAPRITINIB
     Route: 048
     Dates: start: 202412
  3. AVAPRITINIB [Suspect]
     Active Substance: AVAPRITINIB
     Route: 048
     Dates: start: 20241231
  4. AVAPRITINIB [Suspect]
     Active Substance: AVAPRITINIB
     Dosage: ALTERNATING BETWEEN 50 MG AND 100 MG DAILY
     Route: 048
     Dates: start: 202412
  5. AVAPRITINIB [Suspect]
     Active Substance: AVAPRITINIB
     Dosage: ALTERNATING BETWEEN 50 MG AND 100 MG DAILY
     Route: 048
     Dates: start: 202412
  6. AVAPRITINIB [Suspect]
     Active Substance: AVAPRITINIB
     Route: 048
     Dates: start: 20200407
  7. AVAPRITINIB [Suspect]
     Active Substance: AVAPRITINIB
     Route: 048
     Dates: start: 20200407, end: 2025
  8. AVAPRITINIB [Suspect]
     Active Substance: AVAPRITINIB
     Route: 048
     Dates: start: 2025

REACTIONS (8)
  - Abdominal distension [Unknown]
  - Intra-abdominal fluid collection [Recovering/Resolving]
  - Drug intolerance [Unknown]
  - Adverse event [Unknown]
  - Bradyphrenia [Unknown]
  - Swelling [Unknown]
  - Liver disorder [Unknown]
  - Peripheral swelling [Not Recovered/Not Resolved]

NARRATIVE: CASE EVENT DATE: 20241201
